FAERS Safety Report 15778989 (Version 1)
Quarter: 2019Q1

REPORT INFORMATION
  Report Type: Spontaneous
  Country: IN (occurrence: IN)
  Receive Date: 20190101
  Receipt Date: 20190101
  Transmission Date: 20190417
  Serious: Yes (Congenital Anomaly, Other)
  Sender: FDA-Public Use
  Company Number: IN-TORRENT-00002082

PATIENT
  Sex: Female

DRUGS (1)
  1. CARBAMAZEPINE. [Suspect]
     Active Substance: CARBAMAZEPINE
     Indication: SIMPLE PARTIAL SEIZURES
     Dosage: 600 MG DAILY IN DIVIDED DOSES
     Route: 064

REACTIONS (2)
  - Foetal exposure during pregnancy [Unknown]
  - Gollop-Wolfgang complex [Unknown]
